FAERS Safety Report 14235958 (Version 2)
Quarter: 2018Q1

REPORT INFORMATION
  Report Type: Spontaneous
  Country: US (occurrence: US)
  Receive Date: 20171129
  Receipt Date: 20180328
  Transmission Date: 20180508
  Serious: No
  Sender: FDA-Public Use
  Company Number: US-009507513-1711USA005533

PATIENT
  Age: 20 Year
  Sex: Female
  Weight: 89.34 kg

DRUGS (2)
  1. NEXPLANON [Suspect]
     Active Substance: ETONOGESTREL
     Dosage: IMPLANT, LEFT ARM
     Route: 059
     Dates: start: 20170302, end: 20171004
  2. NEXPLANON [Suspect]
     Active Substance: ETONOGESTREL
     Dosage: UNK
     Route: 059
     Dates: start: 20171004

REACTIONS (3)
  - Device kink [Recovered/Resolved]
  - Injury [Unknown]
  - Skin turgor decreased [Unknown]

NARRATIVE: CASE EVENT DATE: 20171004
